FAERS Safety Report 9287102 (Version 1)
Quarter: 2013Q2

REPORT INFORMATION
  Report Type: Spontaneous
  Country: US (occurrence: US)
  Receive Date: 20130513
  Receipt Date: 20130513
  Transmission Date: 20140414
  Serious: Yes (Other)
  Sender: FDA-Public Use
  Company Number: US-PFIZER INC-2013142911

PATIENT
  Age: 93 Year
  Sex: Female
  Weight: 58.05 kg

DRUGS (3)
  1. XALATAN [Suspect]
     Indication: MACULAR DEGENERATION
     Dosage: ONE DROP IN EACH EYE, 1X/DAY
     Route: 047
     Dates: start: 2009
  2. TIMOLOL [Concomitant]
     Dosage: UNK
     Route: 047
  3. COUMADIN [Concomitant]
     Dosage: UNK

REACTIONS (2)
  - Blindness [Unknown]
  - Off label use [Unknown]
